FAERS Safety Report 24620782 (Version 1)
Quarter: 2024Q4

REPORT INFORMATION
  Report Type: Spontaneous
  Country: JP (occurrence: JP)
  Receive Date: 20241114
  Receipt Date: 20241114
  Transmission Date: 20250115
  Serious: Yes (Life-Threatening, Other)
  Sender: ALEXION PHARMACEUTICALS
  Company Number: JP-ASTRAZENECA-202411GLO005117JP

PATIENT
  Age: 44 Year

DRUGS (4)
  1. DURVALUMAB [Suspect]
     Active Substance: DURVALUMAB
     Indication: Non-small cell lung cancer stage III
     Dosage: 1,500 MG/BODY, DAY 1
  2. TREMELIMUMAB [Suspect]
     Active Substance: TREMELIMUMAB
     Indication: Non-small cell lung cancer stage III
     Dosage: 75 MG/BODY, DAY 1
  3. CARBOPLATIN [Suspect]
     Active Substance: CARBOPLATIN
     Dosage: (AN AREA UNDER THE CURVE OF 6) ON DAY 1
     Route: 065
  4. PACLITAXEL [Suspect]
     Active Substance: PACLITAXEL
     Dosage: (100 MG/M2) ON DAYS 1, 8, AND 15.
     Route: 065

REACTIONS (6)
  - Oesophagomediastinal fistula [Unknown]
  - Cytokine release syndrome [Unknown]
  - Colitis [Recovered/Resolved]
  - Myocarditis [Unknown]
  - COVID-19 [Unknown]
  - Candida infection [Recovered/Resolved]
